FAERS Safety Report 4447578-X (Version None)
Quarter: 2004Q3

REPORT INFORMATION
  Report Type: 
  Country: None (occurrence: None)
  Receive Date: 20040823
  Receipt Date: 20040617
  Transmission Date: 20050211
  Serious: No
  Sender: FDA-Public Use
  Company Number: PHEH2004US06651

PATIENT
  Age: 72 Year
  Sex: Male

DRUGS (3)
  1. ZELNORM [Suspect]
     Indication: ERUCTATION
     Dosage: 6 MG, BID, ORAL
     Route: 048
     Dates: start: 20040501
  2. ACIPHEX [Concomitant]
  3. MOBIC [Concomitant]

REACTIONS (1)
  - UNEXPECTED THERAPEUTIC DRUG EFFECT [None]
